FAERS Safety Report 10099015 (Version 1)
Quarter: 2014Q2

REPORT INFORMATION
  Report Type: Spontaneous
  Country: US (occurrence: None)
  Receive Date: 20140422
  Receipt Date: 20140422
  Transmission Date: 20141212
  Serious: No
  Sender: FDA-Public Use
  Company Number: None

PATIENT
  Age: 71 Year
  Sex: Female

DRUGS (1)
  1. ZICAM EXTREME CONGESTION RELIEF [Suspect]
     Indication: NASAL CONGESTION
     Dosage: ONE SPRAY, ONCE DAILY, NASAL
     Route: 045
     Dates: start: 20140402, end: 20140420

REACTIONS (3)
  - Dizziness [None]
  - Lethargy [None]
  - Fatigue [None]
